FAERS Safety Report 6215342-7 (Version None)
Quarter: 2009Q2

REPORT INFORMATION
  Report Type: 
  Country: None (occurrence: None)
  Receive Date: 20090604
  Receipt Date: 20090508
  Transmission Date: 20091009
  Serious: No
  Sender: FDA-Public Use
  Company Number: US-BAYER-200911462BCC

PATIENT
  Age: 75 Year
  Sex: Female
  Weight: 80 kg

DRUGS (1)
  1. ALEVE [Suspect]
     Indication: OSTEOARTHRITIS
     Route: 048
     Dates: start: 20080101, end: 20080101

REACTIONS (1)
  - OSTEOARTHRITIS [None]
